FAERS Safety Report 24922569 (Version 1)
Quarter: 2025Q1

REPORT INFORMATION
  Report Type: Spontaneous
  Country: US (occurrence: None)
  Receive Date: 20250204
  Receipt Date: 20250204
  Transmission Date: 20250409
  Serious: Yes (Death)
  Sender: FDA-CTU
  Company Number: None

PATIENT
  Age: 76 Year
  Sex: Male

DRUGS (1)
  1. DEFERASIROX [Suspect]
     Active Substance: DEFERASIROX
     Indication: Iron overload
     Dosage: FREQUENCY : TWICE A DAY;?
     Route: 048
     Dates: start: 20230810, end: 20250131

REACTIONS (1)
  - Death [None]

NARRATIVE: CASE EVENT DATE: 20250131
